FAERS Safety Report 25208466 (Version 1)
Quarter: 2025Q2

REPORT INFORMATION
  Report Type: Spontaneous
  Country: US (occurrence: US)
  Receive Date: 20250417
  Receipt Date: 20250417
  Transmission Date: 20250717
  Serious: No
  Sender: BRISTOL MYERS SQUIBB
  Company Number: US-BRISTOL-MYERS SQUIBB COMPANY-2025-043887

PATIENT
  Age: 81 Year
  Sex: Female
  Weight: 72.57 kg

DRUGS (3)
  1. ELIQUIS [Suspect]
     Active Substance: APIXABAN
     Indication: Deep vein thrombosis
     Dosage: DOSE: 5MG TABLET; FREQ: 4 TABLETS TWICE A DAY
     Route: 048
     Dates: start: 202503
  2. ELIQUIS [Suspect]
     Active Substance: APIXABAN
     Dates: start: 202304
  3. PANTOPRAZOLE [Concomitant]
     Active Substance: PANTOPRAZOLE
     Indication: Product used for unknown indication

REACTIONS (3)
  - Off label use [Unknown]
  - Product physical issue [Unknown]
  - Gastrooesophageal reflux disease [Unknown]

NARRATIVE: CASE EVENT DATE: 20250301
